FAERS Safety Report 23119145 (Version 1)
Quarter: 2023Q4

REPORT INFORMATION
  Report Type: Spontaneous
  Country: FR (occurrence: FR)
  Receive Date: 20231028
  Receipt Date: 20231028
  Transmission Date: 20240110
  Serious: Yes (Death)
  Sender: FDA-Public Use
  Company Number: None

PATIENT
  Age: 65 Year
  Sex: Female
  Weight: 56 kg

DRUGS (3)
  1. METHOTREXATE [Suspect]
     Active Substance: METHOTREXATE
     Indication: Rheumatoid arthritis
     Dates: start: 201904, end: 201911
  2. METHOTREXATE SODIUM [Suspect]
     Active Substance: METHOTREXATE SODIUM
     Indication: Rheumatoid arthritis
     Dosage: FORM STRENGTH : 17.5 MG/0.35 ML
     Dates: start: 201911, end: 202107
  3. NEO-MERCAZOLE [Suspect]
     Active Substance: CARBIMAZOLE
     Indication: Hyperthyroidism
     Dates: start: 20210104, end: 20210726

REACTIONS (1)
  - Bone marrow failure [Fatal]

NARRATIVE: CASE EVENT DATE: 20210726
